FAERS Safety Report 18252084 (Version 1)
Quarter: 2020Q3

REPORT INFORMATION
  Report Type: Spontaneous
  Country: US (occurrence: US)
  Receive Date: 20200910
  Receipt Date: 20200910
  Transmission Date: 20201103
  Serious: No
  Sender: FDA-Public Use
  Company Number: US-FARMAPROD-202004-0477

PATIENT
  Sex: Male

DRUGS (2)
  1. DRAMAMINE [Concomitant]
     Active Substance: DIMENHYDRINATE
  2. OXERVATE [Suspect]
     Active Substance: CENEGERMIN-BKBJ
     Indication: NEUROTROPHIC KERATOPATHY
     Route: 047
     Dates: start: 20200402

REACTIONS (4)
  - Product use issue [Unknown]
  - Malaise [Unknown]
  - Lethargy [Unknown]
  - Adverse event [Unknown]
